FAERS Safety Report 20091506 (Version 1)
Quarter: 2021Q4

REPORT INFORMATION
  Report Type: Spontaneous
  Country: JP (occurrence: JP)
  Receive Date: 20211119
  Receipt Date: 20211119
  Transmission Date: 20220303
  Serious: Yes (Death, Other)
  Sender: FDA-Public Use
  Company Number: JP-ACTELION-A-CH2017-158820

PATIENT
  Age: 43 Year
  Sex: Female
  Weight: 40 kg

DRUGS (19)
  1. UPTRAVI [Suspect]
     Active Substance: SELEXIPAG
     Indication: Pulmonary arterial hypertension
     Dosage: 0.2 MG, QD
     Route: 048
     Dates: start: 20170517, end: 20170517
  2. UPTRAVI [Suspect]
     Active Substance: SELEXIPAG
     Dosage: 0.2 MG, BID
     Route: 048
     Dates: start: 20170518, end: 20170519
  3. UPTRAVI [Suspect]
     Active Substance: SELEXIPAG
     Dosage: 0.6 MG, QD
     Route: 048
     Dates: start: 20170520, end: 20170521
  4. UPTRAVI [Suspect]
     Active Substance: SELEXIPAG
     Dosage: 0.4 MG, BID
     Route: 048
     Dates: start: 20170522, end: 20170811
  5. UPTRAVI [Suspect]
     Active Substance: SELEXIPAG
     Route: 048
  6. OPSUMIT [Concomitant]
     Active Substance: MACITENTAN
     Indication: Pulmonary arterial hypertension
     Dosage: 10 MG, QD
     Route: 048
     Dates: end: 20170621
  7. OPSUMIT [Concomitant]
     Active Substance: MACITENTAN
     Route: 048
     Dates: start: 20170207, end: 20170811
  8. FLOLAN [Concomitant]
     Active Substance: EPOPROSTENOL SODIUM
     Indication: Pulmonary arterial hypertension
     Dosage: 0.5 MG, QD
     Dates: end: 20170517
  9. FLOLAN [Concomitant]
     Active Substance: EPOPROSTENOL SODIUM
     Indication: Pulmonary arterial hypertension
     Dosage: 0.3 MG, QD
     Route: 048
     Dates: start: 20170518, end: 20170811
  10. ADCIRCA [Concomitant]
     Active Substance: TADALAFIL
     Indication: Pulmonary arterial hypertension
     Dosage: 20 MG, QD
     Route: 048
     Dates: end: 20170621
  11. SAMSCA [Concomitant]
     Active Substance: TOLVAPTAN
     Dosage: 15 MG, QD
     Dates: end: 20170810
  12. RABEPRAZOLE SODIUM [Concomitant]
     Active Substance: RABEPRAZOLE SODIUM
     Dosage: 10 MG, QD
     Dates: end: 20170810
  13. ELTROMBOPAG OLAMINE [Concomitant]
     Active Substance: ELTROMBOPAG OLAMINE
     Dosage: 12.5 MG, QD
     Dates: end: 20170810
  14. AMINO ACIDS, SOURCE UNSPECIFIED [Concomitant]
     Active Substance: AMINO ACIDS, SOURCE UNSPECIFIED
     Dosage: 12.45 G, QD
     Dates: end: 20170601
  15. AMINO ACIDS, SOURCE UNSPECIFIED [Concomitant]
     Active Substance: AMINO ACIDS, SOURCE UNSPECIFIED
  16. PREDONINE [Concomitant]
     Active Substance: PREDNISOLONE
     Indication: Systemic lupus erythematosus
     Dosage: 20 MG, QD
     Dates: end: 20170811
  17. FUROSEMIDE [Concomitant]
     Active Substance: FUROSEMIDE
     Dosage: 60 MG, QD
     Dates: end: 20170811
  18. CANRENOATE POTASSIUM [Concomitant]
     Active Substance: CANRENOATE POTASSIUM
     Dosage: 400 MG, QD
     Dates: end: 20170810
  19. HISHIPHAGEN C [Concomitant]
     Indication: Portal hypertension
     Dosage: 20 ML, QD
     Dates: end: 20170810

REACTIONS (8)
  - Portal hypertension [Fatal]
  - Ascites [Fatal]
  - Concomitant disease aggravated [Fatal]
  - Spontaneous bacterial peritonitis [Fatal]
  - Haemorrhagic diathesis [Fatal]
  - Gastric varices [Recovered/Resolved]
  - Infection susceptibility increased [Fatal]
  - Urinary tract infection [Not Recovered/Not Resolved]

NARRATIVE: CASE EVENT DATE: 20170701
